FAERS Safety Report 5324590-X (Version None)
Quarter: 2007Q2

REPORT INFORMATION
  Report Type: 
  Country: None (occurrence: None)
  Receive Date: 20070509
  Receipt Date: 20070504
  Transmission Date: 20071010
  Serious: Yes (Disabling)
  Sender: FDA-Public Use
  Company Number: OSCN-NO-0704S-0190

PATIENT
  Age: 58 Year
  Sex: Male
  Weight: 95 kg

DRUGS (1)
  1. OMNISCAN [Suspect]
     Indication: GRAFT THROMBOSIS
     Dosage: SINGLE DOSE, I.V.
     Route: 042
     Dates: start: 20060419, end: 20060419

REACTIONS (1)
  - NEPHROGENIC FIBROSING DERMOPATHY [None]
